FAERS Safety Report 25046342 (Version 1)
Quarter: 2025Q1

REPORT INFORMATION
  Report Type: Spontaneous
  Country: DE (occurrence: DE)
  Receive Date: 20250306
  Receipt Date: 20250306
  Transmission Date: 20250408
  Serious: Yes (Hospitalization, Other)
  Sender: SANDOZ
  Company Number: DE-BAXTER-2025BAX011668

PATIENT
  Age: 9 Year
  Sex: Female

DRUGS (5)
  1. CYCLOPHOSPHAMIDE [Suspect]
     Active Substance: CYCLOPHOSPHAMIDE
     Indication: Prophylaxis
     Route: 042
     Dates: start: 20250112, end: 20250114
  2. INOTUZUMAB OZOGAMICIN [Suspect]
     Active Substance: INOTUZUMAB OZOGAMICIN
     Indication: Acute lymphocytic leukaemia refractory
     Route: 042
     Dates: start: 20240823, end: 20240906
  3. CYCLOSPORINE [Concomitant]
     Active Substance: CYCLOSPORINE
     Indication: Prophylaxis
     Route: 042
     Dates: start: 20250108
  4. ETOPOPHOS [Concomitant]
     Active Substance: ETOPOSIDE PHOSPHATE
     Indication: Prophylaxis
     Route: 042
     Dates: start: 20250103, end: 20250103
  5. MYCOPHENOLATE MOFETIL [Concomitant]
     Active Substance: MYCOPHENOLATE MOFETIL
     Indication: Prophylaxis
     Route: 042
     Dates: start: 20250110

REACTIONS (6)
  - Hepatosplenomegaly [Unknown]
  - Weight increased [Unknown]
  - Venoocclusive liver disease [Recovered/Resolved]
  - Blood bilirubin increased [Unknown]
  - Ascites [Recovered/Resolved]
  - Thrombocytopenia [Unknown]

NARRATIVE: CASE EVENT DATE: 20250113
